FAERS Safety Report 21941900 (Version 1)
Quarter: 2023Q1

REPORT INFORMATION
  Report Type: Spontaneous
  Country: JP (occurrence: JP)
  Receive Date: 20230202
  Receipt Date: 20230202
  Transmission Date: 20230417
  Serious: No
  Sender: FDA-Public Use
  Company Number: JP-TAKEDA-2022TJP071219

PATIENT
  Age: 7 Decade
  Sex: Male

DRUGS (1)
  1. CABOMETYX [Suspect]
     Active Substance: CABOZANTINIB S-MALATE
     Indication: Renal cell carcinoma
     Dosage: 40 MG
     Route: 048

REACTIONS (4)
  - Hepatic function abnormal [Recovered/Resolved]
  - Hypertension [Not Recovered/Not Resolved]
  - Palmar-plantar erythrodysaesthesia syndrome [Not Recovered/Not Resolved]
  - Diarrhoea [Not Recovered/Not Resolved]
